FAERS Safety Report 5045305-9 (Version None)
Quarter: 2006Q3

REPORT INFORMATION
  Report Type: 
  Country: None (occurrence: None)
  Receive Date: 20060707
  Receipt Date: 20060623
  Transmission Date: 20061208
  Serious: Yes (Hospitalization)
  Sender: FDA-Public Use
  Company Number: PHBS2006JP09593

PATIENT
  Age: 19 Year
  Sex: Male
  Weight: 60 kg

DRUGS (4)
  1. BENZALIN [Suspect]
     Route: 048
  2. BENZALIN [Suspect]
     Dosage: 6 TABLETS, ONCE/SINGLE
     Route: 048
     Dates: start: 20060621, end: 20060621
  3. TEGRETOL [Suspect]
     Indication: DEPRESSION
     Dosage: 49 TABLETS, ONCE/SINGLE
     Route: 048
     Dates: start: 20060621, end: 20060621
  4. TEGRETOL [Suspect]
     Route: 048

REACTIONS (8)
  - COMA [None]
  - CONVERSION DISORDER [None]
  - CONVULSION [None]
  - DEPRESSED LEVEL OF CONSCIOUSNESS [None]
  - GASTRIC LAVAGE [None]
  - SOMNOLENCE [None]
  - SUICIDE ATTEMPT [None]
  - VOMITING [None]
